FAERS Safety Report 20706266 (Version 1)
Quarter: 2022Q2

REPORT INFORMATION
  Report Type: Spontaneous
  Country: US (occurrence: US)
  Receive Date: 20220413
  Receipt Date: 20220413
  Transmission Date: 20220721
  Serious: No
  Sender: FDA-Public Use
  Company Number: US-SCILEX PHARMACEUTICALS INC.-2021SCX00033

PATIENT
  Age: 65 Year
  Sex: Male
  Weight: 95.238 kg

DRUGS (4)
  1. ZTLIDO [Suspect]
     Active Substance: LIDOCAINE
     Indication: Neuropathy peripheral
     Dosage: 4 PATCHES NIGHTLY (1 PATCH TO THE TOP AND BOTTOM OF EACH FOOT)
     Route: 061
     Dates: start: 20210813, end: 20210814
  2. ZTLIDO [Suspect]
     Active Substance: LIDOCAINE
     Dosage: 3 PATCHES NIGHTLY (1 PATCH TO THE BOTTOM OF RIGHT FOOT AND 1 PATCH TO EACH THE TOP AND BOTTOM OF LEF
     Route: 061
     Dates: start: 20210815, end: 20210816
  3. GABAPENTIN [Concomitant]
     Active Substance: GABAPENTIN
     Dosage: 1500 MG, 1X/DAY AT BEDTIME
  4. TRAZODONE [Concomitant]
     Active Substance: TRAZODONE HYDROCHLORIDE
     Dosage: 25 MG, 1X/DAY AT BEDTIME

REACTIONS (4)
  - Fall [Recovered/Resolved]
  - Intentional overdose [Recovered/Resolved]
  - Dizziness [Recovered/Resolved]
  - Toxicity to various agents [Recovered/Resolved]

NARRATIVE: CASE EVENT DATE: 20210813
